FAERS Safety Report 4982933-0 (Version None)
Quarter: 2006Q2

REPORT INFORMATION
  Report Type: 
  Country: None (occurrence: None)
  Receive Date: 20060420
  Receipt Date: 20060407
  Transmission Date: 20061013
  Serious: Yes (Other)
  Sender: FDA-Public Use
  Company Number: 222783

PATIENT
  Age: 54 Year
  Sex: Female

DRUGS (7)
  1. HERCEPTIN [Suspect]
     Indication: BREAST CANCER METASTATIC
     Dosage: SEE IMAGE
     Dates: start: 20060301
  2. HERCEPTIN [Suspect]
     Indication: BREAST CANCER METASTATIC
     Dosage: SEE IMAGE
     Dates: start: 20060309
  3. VINORELBINE [Concomitant]
  4. ACETAMINOPHEN [Concomitant]
  5. MECLIZINE HCL [Concomitant]
  6. OXYCODONE [Concomitant]
  7. CELEXA [Concomitant]

REACTIONS (11)
  - ABDOMINAL DISCOMFORT [None]
  - AGITATION [None]
  - AKATHISIA [None]
  - BONE PAIN [None]
  - DRUG INTERACTION [None]
  - DRUG INTOLERANCE [None]
  - INFUSION RELATED REACTION [None]
  - MUSCULOSKELETAL CHEST PAIN [None]
  - PAIN [None]
  - RESTLESSNESS [None]
  - THERAPY NON-RESPONDER [None]
